FAERS Safety Report 6426478-X (Version None)
Quarter: 2009Q4

REPORT INFORMATION
  Report Type: 
  Country: None (occurrence: None)
  Receive Date: 20091103
  Receipt Date: 20091103
  Transmission Date: 20100525
  Serious: Yes (Disabling)
  Sender: FDA-Public Use
  Company Number: None

PATIENT
  Age: 65 Year
  Sex: Female
  Weight: 117.9352 kg

DRUGS (1)
  1. SPIRIVA [Suspect]
     Dosage: INHALE 1 CAPSULE IN HANDIHALER DAILY
     Dates: start: 20080107, end: 20091030

REACTIONS (4)
  - CAPSULE ISSUE [None]
  - DYSPNOEA [None]
  - INFLUENZA [None]
  - PRODUCT PACKAGING QUANTITY ISSUE [None]
